FAERS Safety Report 24008517 (Version 2)
Quarter: 2024Q2

REPORT INFORMATION
  Report Type: Spontaneous
  Country: US (occurrence: US)
  Receive Date: 20240625
  Receipt Date: 20240627
  Transmission Date: 20240716
  Serious: No
  Sender: FDA-Public Use
  Company Number: US-AMGEN-USASP2024124154

PATIENT
  Age: 60 Year
  Sex: Female

DRUGS (2)
  1. UPLIZNA [Suspect]
     Active Substance: INEBILIZUMAB-CDON
     Indication: Neuromyelitis optica spectrum disorder
     Dosage: UNK, Q6MO, (ONCE EVERY 6 MONTHS)
     Route: 042
     Dates: start: 20240104
  2. UPLIZNA [Suspect]
     Active Substance: INEBILIZUMAB-CDON
     Dosage: UNK, Q6MO (ONCE EVERY 6 MONTHS)
     Route: 042
     Dates: start: 20240604

REACTIONS (2)
  - Muscle spasms [Not Recovered/Not Resolved]
  - Neuralgia [Not Recovered/Not Resolved]

NARRATIVE: CASE EVENT DATE: 20240401
